FAERS Safety Report 17052150 (Version 4)
Quarter: 2021Q2

REPORT INFORMATION
  Report Type: Spontaneous
  Country: CA (occurrence: CA)
  Receive Date: 20191120
  Receipt Date: 20210515
  Transmission Date: 20210716
  Serious: Yes (Hospitalization, Other)
  Sender: FDA-Public Use
  Company Number: CA-DRREDDYS-USA/CAN/19/0116088

PATIENT
  Age: 52 Year
  Sex: Female

DRUGS (13)
  1. THYROID HORMONES [Suspect]
     Active Substance: UNSPECIFIED INGREDIENT
     Indication: PRODUCT USED FOR UNKNOWN INDICATION
  2. DEHYDROEPIANDROSTERONE [Suspect]
     Active Substance: PRASTERONE
     Indication: PRODUCT USED FOR UNKNOWN INDICATION
     Route: 067
  3. GLICLAZIDE [Concomitant]
     Active Substance: GLICLAZIDE
     Indication: PRODUCT USED FOR UNKNOWN INDICATION
     Route: 048
  4. PROGESTERONE CAPSULES [Suspect]
     Active Substance: PROGESTERONE
     Indication: MENOPAUSE
     Route: 065
  5. BUDESONIDE. [Suspect]
     Active Substance: BUDESONIDE
     Indication: PRODUCT USED FOR UNKNOWN INDICATION
     Route: 045
  6. BUDESONIDE. [Suspect]
     Active Substance: BUDESONIDE
     Route: 045
  7. LORATADINE. [Suspect]
     Active Substance: LORATADINE
     Indication: PRODUCT USED FOR UNKNOWN INDICATION
     Route: 048
  8. CLARITIN [Concomitant]
     Active Substance: LORATADINE
     Indication: PRODUCT USED FOR UNKNOWN INDICATION
  9. BUDESONIDE. [Concomitant]
     Active Substance: BUDESONIDE
     Indication: PRODUCT USED FOR UNKNOWN INDICATION
  10. PRASTERONE [Suspect]
     Active Substance: PRASTERONE
     Indication: PRODUCT USED FOR UNKNOWN INDICATION
     Route: 067
  11. ESTRADIOL. [Suspect]
     Active Substance: ESTRADIOL
     Indication: PRODUCT USED FOR UNKNOWN INDICATION
  12. CRINONE [Suspect]
     Active Substance: PROGESTERONE
     Indication: PRODUCT USED FOR UNKNOWN INDICATION
  13. CRINONE [Suspect]
     Active Substance: PROGESTERONE
     Indication: MENOPAUSE

REACTIONS (11)
  - Head discomfort [Unknown]
  - Photosensitivity reaction [Unknown]
  - Tinnitus [Unknown]
  - Product use in unapproved indication [Unknown]
  - Periorbital oedema [Unknown]
  - Rash [Unknown]
  - Swelling face [Unknown]
  - Feeling hot [Unknown]
  - Cellulitis [Unknown]
  - Butterfly rash [Unknown]
  - Headache [Unknown]
